FAERS Safety Report 20662449 (Version 1)
Quarter: 2022Q1

REPORT INFORMATION
  Report Type: Spontaneous
  Country: US (occurrence: None)
  Receive Date: 20220331
  Receipt Date: 20220331
  Transmission Date: 20220423
  Serious: Yes (Other)
  Sender: FDA-Public Use
  Company Number: None

PATIENT
  Sex: Female

DRUGS (2)
  1. ENBREL [Suspect]
     Active Substance: ETANERCEPT
     Indication: Essential hypertension
     Dosage: INJECT 50MG UNDER THE SKIN (SUBCUTANEOUS INJECTION) EVERY WEEK
     Route: 058
     Dates: start: 20210226
  2. ENBREL [Suspect]
     Active Substance: ETANERCEPT
     Indication: Rheumatoid arthritis

REACTIONS (2)
  - Breast cancer [None]
  - Product dose omission in error [None]
